FAERS Safety Report 12723240 (Version 1)
Quarter: 2016Q3

REPORT INFORMATION
  Report Type: Spontaneous
  Country: US (occurrence: US)
  Receive Date: 20160908
  Receipt Date: 20160908
  Transmission Date: 20161109
  Serious: No
  Sender: FDA-Public Use
  Company Number: US-ZYDUS-010407

PATIENT
  Age: 53 Year
  Sex: Male

DRUGS (1)
  1. MELOXICAM. [Suspect]
     Active Substance: MELOXICAM
     Indication: MUSCULOSKELETAL PAIN
     Dosage: 15 MG DAILY
     Route: 048
     Dates: start: 20160202, end: 20160225

REACTIONS (3)
  - Local swelling [Not Recovered/Not Resolved]
  - Incontinence [Not Recovered/Not Resolved]
  - Dysuria [Not Recovered/Not Resolved]

NARRATIVE: CASE EVENT DATE: 201602
